FAERS Safety Report 6882819-0 (Version None)
Quarter: 2010Q3

REPORT INFORMATION
  Report Type: 
  Country: None (occurrence: None)
  Receive Date: 20100729
  Receipt Date: 20100721
  Transmission Date: 20110219
  Serious: Yes (Hospitalization)
  Sender: FDA-Public Use
  Company Number: US-JNJFOC-20100707120

PATIENT
  Sex: Female
  Weight: 43 kg

DRUGS (2)
  1. SPORANOX [Suspect]
     Indication: HISTOPLASMOSIS
     Route: 048
  2. TACROLIMUS [Concomitant]
     Indication: IMMUNOSUPPRESSION
     Route: 048

REACTIONS (1)
  - ATRIAL FIBRILLATION [None]
